FAERS Safety Report 9874686 (Version 2)
Quarter: 2014Q2

REPORT INFORMATION
  Report Type: Spontaneous
  Country: BD (occurrence: BD)
  Receive Date: 20140206
  Receipt Date: 20140402
  Transmission Date: 20141212
  Serious: Yes (Hospitalization)
  Sender: FDA-Public Use
  Company Number: PHHY2014BD013555

PATIENT
  Age: 70 Year
  Sex: Female

DRUGS (5)
  1. ACLASTA [Suspect]
     Dosage: UNK UKN, UNK
     Route: 042
     Dates: start: 20140202
  2. BISOPROLOL [Concomitant]
     Indication: HYPERTENSION
     Dosage: UNK UKN, DAILY
     Route: 048
     Dates: start: 20130304
  3. CALCIUM + VIT D [Concomitant]
     Indication: OSTEOPOROSIS
     Dosage: UNK UKN, DAILY
     Route: 048
     Dates: start: 20131228
  4. FOLISON//FOLIC ACID [Concomitant]
     Dosage: UNK UKN, DAILY
     Route: 048
     Dates: start: 20131228
  5. OMEPRAZOLE [Concomitant]
     Indication: PEPTIC ULCER
     Dosage: UNK UKN, DAILY  (IRREGULAR TAKING)
     Route: 048
     Dates: start: 20120506

REACTIONS (3)
  - Hypertension [Unknown]
  - Incorrect drug administration duration [Unknown]
  - Underdose [Unknown]
